FAERS Safety Report 4550012-2 (Version None)
Quarter: 2005Q1

REPORT INFORMATION
  Report Type: 
  Country: None (occurrence: None)
  Receive Date: 20050111
  Receipt Date: 20050111
  Transmission Date: 20050727
  Serious: Yes (Life-Threatening, Hospitalization)
  Sender: FDA-Public Use
  Company Number: None

PATIENT
  Sex: Male
  Weight: 127 kg

DRUGS (1)
  1. DEXAMETHASONE 6 MG/M2/X 5 D IV D1, 29, 57 ETC [Suspect]
     Indication: ACUTE LYMPHOCYTIC LEUKAEMIA
     Dosage: 15.5 MG X 5 D Q 28 D IV
     Route: 042
     Dates: start: 20040303, end: 20041212

REACTIONS (5)
  - BURNING SENSATION [None]
  - DISCOMFORT [None]
  - PAIN [None]
  - THERAPY NON-RESPONDER [None]
  - VOMITING [None]
